FAERS Safety Report 25138676 (Version 5)
Quarter: 2025Q2

REPORT INFORMATION
  Report Type: Spontaneous
  Country: US (occurrence: US)
  Receive Date: 20250330
  Receipt Date: 20250522
  Transmission Date: 20250716
  Serious: Yes (Hospitalization)
  Sender: SANOFI AVENTIS
  Company Number: US-SA-2025SA090532

PATIENT
  Age: 70 Year
  Sex: Male
  Weight: 145.45 kg

DRUGS (2)
  1. DUPIXENT [Suspect]
     Active Substance: DUPILUMAB
     Indication: Asthma
     Route: 058
     Dates: start: 20250322, end: 20250322
  2. DUPIXENT [Suspect]
     Active Substance: DUPILUMAB
     Indication: Respiration abnormal
     Dosage: 600 MG, QOW
     Route: 058
     Dates: start: 20250405

REACTIONS (5)
  - Substance use [Unknown]
  - Dyspnoea [Unknown]
  - Injection site pain [Unknown]
  - Extra dose administered [Unknown]
  - Product use in unapproved indication [Unknown]

NARRATIVE: CASE EVENT DATE: 20250101
